FAERS Safety Report 19581299 (Version 1)
Quarter: 2021Q3

REPORT INFORMATION
  Report Type: Spontaneous
  Country: US (occurrence: US)
  Receive Date: 20210719
  Receipt Date: 20210719
  Transmission Date: 20211014
  Serious: Yes (Hospitalization)
  Sender: FDA-Public Use
  Company Number: None

PATIENT
  Sex: Female

DRUGS (2)
  1. FORTEO [Suspect]
     Active Substance: TERIPARATIDE
     Indication: OSTEOPOROSIS
     Route: 058
     Dates: start: 20190927
  2. LISINOPRIL, LEVOTHYROXINE, OSCAL, SENSIPAR, LIPITOR, DIOVAN [Concomitant]

REACTIONS (1)
  - Diarrhoea [None]
